FAERS Safety Report 16804706 (Version 1)
Quarter: 2019Q3

REPORT INFORMATION
  Report Type: Spontaneous
  Country: BE (occurrence: BE)
  Receive Date: 20190913
  Receipt Date: 20190913
  Transmission Date: 20191005
  Serious: Yes (Other)
  Sender: FDA-Public Use
  Company Number: BE-MYLANLABS-2019M1084975

PATIENT
  Age: 7 Decade
  Sex: Female

DRUGS (7)
  1. ADRIABLASTINA [Suspect]
     Active Substance: DOXORUBICIN
     Indication: THYMOMA
     Dosage: UNK
     Route: 065
  2. PACLITAXEL. [Suspect]
     Active Substance: PACLITAXEL
     Indication: THYMOMA
     Dosage: UNK
     Route: 065
  3. CARBOPLATIN. [Suspect]
     Active Substance: CARBOPLATIN
     Indication: THYMOMA
     Dosage: UNK
     Route: 065
  4. ETOPOSIDE. [Suspect]
     Active Substance: ETOPOSIDE
     Indication: THYMOMA
     Dosage: UNK
     Route: 065
  5. IFOSFAMIDE. [Suspect]
     Active Substance: IFOSFAMIDE
     Indication: THYMOMA
     Dosage: UNK
     Route: 065
  6. CISPLATIN. [Suspect]
     Active Substance: CISPLATIN
     Indication: THYMOMA
     Dosage: UNK
     Route: 065
  7. CYCLOPHOSPHAMIDE. [Suspect]
     Active Substance: CYCLOPHOSPHAMIDE
     Indication: THYMOMA
     Route: 065

REACTIONS (2)
  - Myelodysplastic syndrome [Unknown]
  - Aplasia pure red cell [Unknown]
